FAERS Safety Report 4491512-3 (Version None)
Quarter: 2004Q4

REPORT INFORMATION
  Report Type: 
  Country: None (occurrence: None)
  Receive Date: 20041101
  Receipt Date: 20041014
  Transmission Date: 20050328
  Serious: Yes (Hospitalization)
  Sender: FDA-Public Use
  Company Number: B0347543A

PATIENT
  Age: 85 Year
  Sex: Female
  Weight: 72.6 kg

DRUGS (1)
  1. ZOVIRAX [Suspect]
     Dosage: 200 MG / TWICE PER DAY / ORAL
     Route: 048

REACTIONS (2)
  - HAEMODIALYSIS [None]
  - SPEECH DISORDER [None]
